FAERS Safety Report 9277978 (Version 1)
Quarter: 2013Q2

REPORT INFORMATION
  Report Type: Spontaneous
  Country: JP (occurrence: JP)
  Receive Date: 20130508
  Receipt Date: 20130508
  Transmission Date: 20140414
  Serious: Yes (Hospitalization, Other)
  Sender: FDA-Public Use
  Company Number: JP-009507513-1304JPN011848

PATIENT
  Age: 80 Year
  Sex: Female

DRUGS (5)
  1. PRANLUKAST [Suspect]
     Indication: ASTHMA
     Route: 048
  2. PREDNISOLONE [Suspect]
     Indication: STATUS ASTHMATICUS
     Route: 048
  3. ADOAIR [Suspect]
     Indication: ASTHMA
     Route: 055
  4. METHYLPREDNISOLONE SODIUM SUCCINATE [Suspect]
     Indication: STATUS ASTHMATICUS
     Route: 042
  5. INSULIN [Concomitant]

REACTIONS (1)
  - Blood glucose increased [Unknown]
